FAERS Safety Report 8826861 (Version 2)
Quarter: 2012Q4

REPORT INFORMATION
  Report Type: Report from Study
  Country: DK (occurrence: DK)
  Receive Date: 20121008
  Receipt Date: 20121205
  Transmission Date: 20130627
  Serious: Yes (Congenital Anomaly)
  Sender: FDA-Public Use
  Company Number: DK-AMGEN-DNKCT2012062845

PATIENT

DRUGS (1)
  1. ETANERCEPT [Suspect]
     Dosage: UNK
     Route: 064

REACTIONS (2)
  - Maternal exposure timing unspecified [Unknown]
  - Congenital anomaly [Unknown]
